FAERS Safety Report 22186511 (Version 1)
Quarter: 2023Q2

REPORT INFORMATION
  Report Type: Spontaneous
  Country: CH (occurrence: CH)
  Receive Date: 20230407
  Receipt Date: 20230407
  Transmission Date: 20230722
  Serious: Yes (Hospitalization)
  Sender: FDA-Public Use
  Company Number: CH-BAYER-2021A248158

PATIENT
  Age: 59 Year
  Sex: Male

DRUGS (1)
  1. RIVAROXABAN [Suspect]
     Active Substance: RIVAROXABAN
     Indication: Atrial fibrillation
     Dosage: UNK
     Route: 048

REACTIONS (5)
  - Intracardiac thrombus [Unknown]
  - Pulmonary embolism [Unknown]
  - Right ventricular dysfunction [Unknown]
  - Deep vein thrombosis [Recovered/Resolved]
  - Anticoagulation drug level below therapeutic [Unknown]
